FAERS Safety Report 7305861-4 (Version None)
Quarter: 2011Q1

REPORT INFORMATION
  Report Type: 
  Country: None (occurrence: None)
  Receive Date: 20110222
  Receipt Date: 20110211
  Transmission Date: 20110831
  Serious: Yes (Death)
  Sender: FDA-Public Use
  Company Number: DE-ROCHE-761183

PATIENT
  Sex: Male
  Weight: 67 kg

DRUGS (6)
  1. PEGINTERFERON ALFA-2A [Suspect]
     Route: 058
     Dates: start: 20100910, end: 20101221
  2. OMEPRAZOLE [Concomitant]
     Route: 048
     Dates: end: 20101221
  3. SPIRONOLAKTON [Concomitant]
     Route: 048
     Dates: end: 20101221
  4. RIBAVIRIN [Suspect]
     Route: 048
     Dates: start: 20100910, end: 20101221
  5. OBSIDAN (PROPRANOLOL) [Concomitant]
     Route: 048
     Dates: end: 20101221
  6. FUROSEMID [Concomitant]
     Route: 048
     Dates: end: 20101221

REACTIONS (1)
  - GENERAL PHYSICAL HEALTH DETERIORATION [None]
